FAERS Safety Report 15387496 (Version 1)
Quarter: 2018Q3

REPORT INFORMATION
  Report Type: Spontaneous
  Country: IL (occurrence: IL)
  Receive Date: 20180914
  Receipt Date: 20180914
  Transmission Date: 20181010
  Serious: Yes (Other)
  Sender: FDA-Public Use
  Company Number: IL-009507513-1809ISR004799

PATIENT
  Age: 4 Year
  Sex: Male

DRUGS (2)
  1. AMPHOTERICIN B (+) CHOLESTEROL (+) DISTEAROYLPHOSPHATIDYLGLYCEROL (+) [Concomitant]
     Active Substance: AMPHOTERICIN B\CHOLESTEROL
     Indication: MUCORMYCOSIS
     Dosage: 5 MG/KG, QD
  2. CASPOFUNGIN ACETATE. [Suspect]
     Active Substance: CASPOFUNGIN ACETATE
     Indication: MUCORMYCOSIS
     Dosage: 50 MG/M2, QD

REACTIONS (3)
  - Mucormycosis [Recovering/Resolving]
  - Drug ineffective [Unknown]
  - Blindness [Recovering/Resolving]
